FAERS Safety Report 7816505-7 (Version None)
Quarter: 2011Q4

REPORT INFORMATION
  Report Type: 
  Country: None (occurrence: None)
  Receive Date: 20111017
  Receipt Date: 20111006
  Transmission Date: 20120403
  Serious: Yes (Life-Threatening, Hospitalization)
  Sender: FDA-Public Use
  Company Number: DE-JNJFOC-20110710752

PATIENT
  Age: 50 Year
  Sex: Male

DRUGS (2)
  1. REMICADE [Suspect]
     Indication: CROHN'S DISEASE
     Dosage: SECOND DOSE
     Route: 042
     Dates: start: 20110704
  2. REMICADE [Suspect]
     Route: 042

REACTIONS (3)
  - SEPTIC SHOCK [None]
  - CARDIOMYOPATHY [None]
  - PNEUMONIA LEGIONELLA [None]
